FAERS Safety Report 10273973 (Version 1)
Quarter: 2014Q2

REPORT INFORMATION
  Report Type: Spontaneous
  Country: US (occurrence: None)
  Receive Date: 20140630
  Receipt Date: 20140630
  Transmission Date: 20141212
  Serious: No
  Sender: FDA-Public Use
  Company Number: None

PATIENT
  Age: 83 Year
  Sex: Male

DRUGS (6)
  1. IMBRUVICA [Suspect]
     Indication: CHRONIC LYMPHOCYTIC LEUKAEMIA
     Route: 048
     Dates: start: 20140603
  2. ASPIRIN [Concomitant]
  3. VITAMIN B [Concomitant]
  4. VITAMIN C [Concomitant]
  5. VITAMIN D [Concomitant]
  6. VITAMIN E [Concomitant]

REACTIONS (5)
  - Constipation [None]
  - Asthenia [None]
  - Fatigue [None]
  - Unevaluable event [None]
  - Paraplegia [None]
